FAERS Safety Report 23547293 (Version 2)
Quarter: 2024Q1

REPORT INFORMATION
  Report Type: Spontaneous
  Country: FR (occurrence: FR)
  Receive Date: 20240221
  Receipt Date: 20240306
  Transmission Date: 20240410
  Serious: Yes (Death, Other)
  Sender: FDA-Public Use
  Company Number: FR-AFSSAPS-AM2024000088

PATIENT
  Age: 55 Year
  Sex: Male
  Weight: 138 kg

DRUGS (8)
  1. NAPROXEN [Suspect]
     Active Substance: NAPROXEN
     Indication: Diabetic foot
     Dosage: 1100 MILLIGRAM, ONCE A DAY,  550MG 2/D
     Route: 048
     Dates: start: 20231130, end: 20231230
  2. IBUPROFEN [Suspect]
     Active Substance: IBUPROFEN
     Indication: Pain
     Dosage: UNK
     Route: 048
     Dates: start: 20240115, end: 20240122
  3. PRAVASTATIN [Suspect]
     Active Substance: PRAVASTATIN
     Indication: Dyslipidaemia
     Dosage: 20 MILLIGRAM, ONCE A DAY
     Route: 048
     Dates: end: 20240122
  4. METFORMIN [Suspect]
     Active Substance: METFORMIN HYDROCHLORIDE
     Indication: Type 2 diabetes mellitus
     Dosage: 2550 MILLIGRAM, ONCE A DAY
     Route: 048
     Dates: end: 20240123
  5. DICLOFENAC [Suspect]
     Active Substance: DICLOFENAC
     Indication: Diabetic foot
     Dosage: UNK
     Route: 048
     Dates: start: 20230921, end: 20231230
  6. HYDROCORTISONE [Suspect]
     Active Substance: HYDROCORTISONE
     Indication: Diabetic foot
     Dosage: UNK
     Route: 048
     Dates: start: 20230921
  7. CANDESARTAN CILEXETIL\HYDROCHLOROTHIAZIDE [Suspect]
     Active Substance: CANDESARTAN CILEXETIL\HYDROCHLOROTHIAZIDE
     Indication: Hypertension
     Dosage: 1 DOSAGE FORM, ONCE A DAY
     Route: 048
     Dates: end: 20240122
  8. KARDEGIC [Suspect]
     Active Substance: ASPIRIN DL-LYSINE
     Indication: Cardiovascular event prophylaxis
     Dosage: 1 DOSAGE FORM, ONCE A DAY
     Route: 048
     Dates: end: 20240122

REACTIONS (3)
  - Lactic acidosis [Fatal]
  - Acute kidney injury [Fatal]
  - Infection [Fatal]

NARRATIVE: CASE EVENT DATE: 20240123
